FAERS Safety Report 4773386-6 (Version None)
Quarter: 2005Q3

REPORT INFORMATION
  Report Type: 
  Country: None (occurrence: None)
  Receive Date: 20050920
  Receipt Date: 20050704
  Transmission Date: 20060218
  Serious: Yes (Other)
  Sender: FDA-Public Use
  Company Number: JP-BRACCO-BRO-008779

PATIENT
  Sex: Male
  Weight: 61.5 kg

DRUGS (14)
  1. IOPAMIRON [Suspect]
     Indication: CORONARY ARTERY STENOSIS
     Dosage: 7 ML/INJECTION
     Route: 016
     Dates: start: 20050603, end: 20050603
  2. IOPAMIRON [Suspect]
     Indication: STENT PLACEMENT
     Dosage: 7 ML/INJECTION
     Route: 016
     Dates: start: 20050603, end: 20050603
  3. IOPAMIRON [Suspect]
     Indication: ARTERIOGRAM CORONARY
     Dosage: 7 ML/INJECTION
     Route: 016
     Dates: start: 20050603, end: 20050603
  4. DIAZEPAM [Interacting]
     Route: 050
     Dates: start: 20050603, end: 20050603
  5. BUFFERIN                           /00009201/ [Concomitant]
     Route: 050
  6. BLOPRESS [Concomitant]
     Route: 050
  7. LIPOVAS                            /00848101/ [Concomitant]
     Route: 050
  8. HERBESSOR R [Concomitant]
     Route: 050
  9. FRANDOL [Concomitant]
     Route: 050
  10. SIGMART [Concomitant]
     Route: 050
  11. PANALDINE [Concomitant]
     Route: 050
  12. RIZE [Concomitant]
     Route: 050
  13. EUGLUCON [Concomitant]
     Route: 050
  14. MELBIN [Concomitant]
     Route: 050

REACTIONS (3)
  - BLOOD PRESSURE DECREASED [None]
  - DEPRESSED LEVEL OF CONSCIOUSNESS [None]
  - DYSARTHRIA [None]
